FAERS Safety Report 23087723 (Version 1)
Quarter: 2023Q4

REPORT INFORMATION
  Report Type: Spontaneous
  Country: US (occurrence: US)
  Receive Date: 20231020
  Receipt Date: 20231020
  Transmission Date: 20240109
  Serious: Yes (Hospitalization, Other)
  Sender: FDA-Public Use
  Company Number: US-TWI PHARMACEUTICAL, INC-2023SCTW000065

PATIENT

DRUGS (1)
  1. BUPROPION HYDROCHLORIDE XL [Suspect]
     Active Substance: BUPROPION HYDROCHLORIDE
     Indication: Product used for unknown indication
     Dosage: UNK
     Route: 048

REACTIONS (5)
  - Cardiogenic shock [Recovering/Resolving]
  - Myoclonus [Recovering/Resolving]
  - Dysarthria [Recovering/Resolving]
  - Cardiac arrest [Recovering/Resolving]
  - Intentional overdose [Unknown]
